FAERS Safety Report 8920818 (Version 1)
Quarter: 2012Q4

REPORT INFORMATION
  Report Type: 
  Country: US (occurrence: US)
  Receive Date: 20121121
  Receipt Date: 20121121
  Transmission Date: 20130627
  Serious: Yes (Death)
  Sender: FDA-Public Use
  Company Number: US-ALET-2012-19610

PATIENT
  Age: 48 Year

DRUGS (3)
  1. PIPERACILLIN AND TAZOBACTAM [Suspect]
     Indication: BACTERIAL SEPSIS
     Dosage: UNK
     Route: 065
  2. CIPROFLOXACIN HYDROCHLORIDE (UNKNOWN) [Suspect]
     Indication: BACTERIAL SEPSIS
     Dosage: UNK
     Route: 065
  3. VANCOMYCIN [Concomitant]
     Indication: BACTERIAL SEPSIS
     Dosage: UNK
     Route: 065

REACTIONS (1)
  - Drug ineffective [Fatal]
